FAERS Safety Report 8127708-9 (Version None)
Quarter: 2011Q4

REPORT INFORMATION
  Report Type: 
  Country: None (occurrence: None)
  Receive Date: 20111227
  Receipt Date: 20110907
  Transmission Date: 20120403
  Serious: No
  Sender: FDA-Public Use
  Company Number: PHEH2011US03563

PATIENT
  Sex: Female

DRUGS (4)
  1. GILENYA [Suspect]
     Dosage: 0.5 MG, QD, ORAL
     Route: 048
  2. WELLBUTRIN (BUPROPION HYDROCHLORIDE) TABLET [Concomitant]
  3. PHENDIMETRAZINE (PHENDIMETRAZINE) TABLET [Concomitant]
  4. VITAMIN B6 (PYRIDOXINE HYDROCHLORIDE) TABLET [Concomitant]

REACTIONS (3)
  - INSOMNIA [None]
  - FATIGUE [None]
  - HEADACHE [None]
